FAERS Safety Report 17076633 (Version 3)
Quarter: 2020Q2

REPORT INFORMATION
  Report Type: Spontaneous
  Country: US (occurrence: US)
  Receive Date: 20191126
  Receipt Date: 20200625
  Transmission Date: 20200713
  Serious: Yes (Other)
  Sender: FDA-Public Use
  Company Number: US-SA-2019SA325589

PATIENT

DRUGS (1)
  1. DUPIXENT [Suspect]
     Active Substance: DUPILUMAB
     Indication: NEURODERMATITIS
     Dosage: 300 MG, QOW
     Route: 058
     Dates: start: 20190725

REACTIONS (5)
  - Lung disorder [Not Recovered/Not Resolved]
  - Rash [Not Recovered/Not Resolved]
  - Injection site reaction [Unknown]
  - Lyme disease [Not Recovered/Not Resolved]
  - Urticaria [Not Recovered/Not Resolved]
